FAERS Safety Report 7120826-3 (Version None)
Quarter: 2010Q4

REPORT INFORMATION
  Report Type: 
  Country: None (occurrence: None)
  Receive Date: 20101124
  Receipt Date: 20101111
  Transmission Date: 20110411
  Serious: Yes (Hospitalization)
  Sender: FDA-Public Use
  Company Number: TW-JNJFOC-20101104078

PATIENT
  Age: 79 Year
  Sex: Female

DRUGS (1)
  1. CRAVIT [Suspect]
     Indication: PNEUMONIA ASPIRATION
     Route: 041

REACTIONS (3)
  - INCORRECT DRUG ADMINISTRATION RATE [None]
  - RASH [None]
  - VASODILATATION [None]
